FAERS Safety Report 20834413 (Version 7)
Quarter: 2024Q2

REPORT INFORMATION
  Report Type: Spontaneous
  Country: US (occurrence: US)
  Receive Date: 20220516
  Receipt Date: 20240523
  Transmission Date: 20240715
  Serious: Yes (Other)
  Sender: FDA-Public Use
  Company Number: US-PFIZER INC-202200709786

PATIENT
  Age: 74 Year
  Sex: Female

DRUGS (1)
  1. XELJANZ [Suspect]
     Active Substance: TOFACITINIB CITRATE
     Indication: Rheumatoid arthritis
     Dosage: 5 MG, 2X/DAY
     Route: 048
     Dates: start: 20221206

REACTIONS (34)
  - Sjogren^s syndrome [Unknown]
  - Melaena [Unknown]
  - Haematochezia [Unknown]
  - Rheumatoid arthritis [Unknown]
  - Fatigue [Recovering/Resolving]
  - Musculoskeletal stiffness [Recovering/Resolving]
  - Cough [Recovering/Resolving]
  - Joint swelling [Recovering/Resolving]
  - Pain [Recovering/Resolving]
  - Condition aggravated [Unknown]
  - Swelling [Not Recovered/Not Resolved]
  - Pyrexia [Unknown]
  - Infection [Unknown]
  - Eye symptom [Unknown]
  - Visual impairment [Unknown]
  - Stomatitis [Unknown]
  - Oral disorder [Unknown]
  - Chest pain [Unknown]
  - Loss of personal independence in daily activities [Unknown]
  - Blood pressure abnormal [Unknown]
  - Oedema [Unknown]
  - Abdominal pain [Unknown]
  - Bowel movement irregularity [Unknown]
  - Jaundice [Unknown]
  - Urinary tract disorder [Unknown]
  - Blood glucose abnormal [Unknown]
  - Skin lesion [Unknown]
  - Stress [Unknown]
  - Herpes zoster [Not Recovered/Not Resolved]
  - Back pain [Unknown]
  - Hernia [Not Recovered/Not Resolved]
  - Condition aggravated [Not Recovered/Not Resolved]
  - Bursitis [Unknown]
  - Abdominal distension [Unknown]
